FAERS Safety Report 19027714 (Version 4)
Quarter: 2021Q3

REPORT INFORMATION
  Report Type: Report from Study
  Country: US (occurrence: US)
  Receive Date: 20210319
  Receipt Date: 20210812
  Transmission Date: 20211014
  Serious: No
  Sender: FDA-Public Use
  Company Number: NVSC2021US056178

PATIENT
  Age: 59 Year
  Sex: Male

DRUGS (2)
  1. ENTRESTO [Suspect]
     Active Substance: SACUBITRIL\VALSARTAN
     Route: 048
  2. ENTRESTO [Suspect]
     Active Substance: SACUBITRIL\VALSARTAN
     Indication: PRODUCT USED FOR UNKNOWN INDICATION
     Dosage: 0.5 DF (24/26 MG), BID
     Route: 048

REACTIONS (9)
  - Accident [Unknown]
  - Paraesthesia [Unknown]
  - Hypoaesthesia [Recovered/Resolved]
  - Product dose omission issue [Unknown]
  - Memory impairment [Unknown]
  - Dizziness [Unknown]
  - Foot fracture [Unknown]
  - Wrong technique in product usage process [Unknown]
  - Haematoma [Unknown]

NARRATIVE: CASE EVENT DATE: 20210527
